FAERS Safety Report 6924310-9 (Version None)
Quarter: 2010Q3

REPORT INFORMATION
  Report Type: 
  Country: None (occurrence: None)
  Receive Date: 20100811
  Receipt Date: 20100811
  Transmission Date: 20110219
  Serious: Yes (Death)
  Sender: FDA-Public Use
  Company Number: None

PATIENT
  Age: 81 Year
  Sex: Female
  Weight: 74 kg

DRUGS (2)
  1. DILTIAZEM [Suspect]
     Indication: ATRIAL FIBRILLATION
     Dosage: 20MG ONE TIME IV BOLUS
     Route: 040
     Dates: start: 20100726, end: 20100726
  2. DILTIAZEM [Suspect]
     Indication: DYSPNOEA
     Dosage: 20MG ONE TIME IV BOLUS
     Route: 040
     Dates: start: 20100726, end: 20100726

REACTIONS (4)
  - CARDIAC ARREST [None]
  - PRODUCT MEASURED POTENCY ISSUE [None]
  - PRODUCT QUALITY ISSUE [None]
  - UNRESPONSIVE TO STIMULI [None]
